FAERS Safety Report 6519864-0 (Version None)
Quarter: 2009Q4

REPORT INFORMATION
  Report Type: 
  Country: None (occurrence: None)
  Receive Date: 20091228
  Receipt Date: 20091228
  Transmission Date: 20100525
  Serious: No
  Sender: FDA-Public Use
  Company Number: None

PATIENT
  Age: 77 Year
  Sex: Male

DRUGS (1)
  1. BACTRIM DS [Suspect]
     Dosage: ONE TABLET TWICE A DAY PO
     Route: 048
     Dates: start: 20091129, end: 20091129

REACTIONS (3)
  - BRADYCARDIA [None]
  - FLUSHING [None]
  - HYPOTENSION [None]
